FAERS Safety Report 5190974-6 (Version None)
Quarter: 2006Q4

REPORT INFORMATION
  Report Type: 
  Country: None (occurrence: None)
  Receive Date: 20061222
  Receipt Date: 20061212
  Transmission Date: 20070319
  Serious: Yes (Hospitalization)
  Sender: FDA-Public Use
  Company Number: ES-ABBOTT-06P-144-0353104-00

PATIENT
  Age: 60 Year
  Sex: Female

DRUGS (6)
  1. HUMIRA [Suspect]
     Indication: RHEUMATOID ARTHRITIS
     Route: 042
     Dates: start: 20030129, end: 20041203
  2. TRANSTEC [Concomitant]
     Indication: DEPRESSION
     Route: 062
     Dates: start: 20030101, end: 20040101
  3. PAROXETINA [Concomitant]
     Indication: DEPRESSION
     Route: 048
     Dates: start: 20040405
  4. CHLORTHALIDONE [Concomitant]
     Indication: HYPERTENSION
     Route: 048
     Dates: start: 20031009, end: 20041203
  5. DEFLAZACORT [Concomitant]
     Indication: RHEUMATOID ARTHRITIS
     Route: 048
     Dates: start: 20031229
  6. OMEPRAZOLE [Concomitant]
     Indication: PEPTIC ULCER
     Route: 048

REACTIONS (1)
  - CARDIAC FAILURE [None]
